FAERS Safety Report 4924470-5 (Version None)
Quarter: 2006Q1

REPORT INFORMATION
  Report Type: 
  Country: None (occurrence: None)
  Receive Date: 20060227
  Receipt Date: 20050106
  Transmission Date: 20060701
  Serious: No
  Sender: FDA-Public Use
  Company Number: US-GLAXOSMITHKLINE-A0588197A

PATIENT
  Age: 53 Year
  Sex: Female

DRUGS (5)
  1. WELLBUTRIN XL [Suspect]
     Indication: DEPRESSION
     Dosage: 300MCG PER DAY
     Route: 048
  2. EFFEXOR XR [Concomitant]
  3. BUSPAR [Concomitant]
  4. XANAX [Concomitant]
  5. NEURONTIN [Concomitant]

REACTIONS (2)
  - AGITATION [None]
  - TREMOR [None]
